FAERS Safety Report 5661581-3 (Version None)
Quarter: 2008Q1

REPORT INFORMATION
  Report Type: 
  Country: None (occurrence: None)
  Receive Date: 20080312
  Receipt Date: 20080227
  Transmission Date: 20080703
  Serious: Yes (Life-Threatening, Hospitalization)
  Sender: FDA-Public Use
  Company Number: MY-AMGEN-US267822

PATIENT
  Weight: 58.5 kg

DRUGS (6)
  1. NEULASTIM [Suspect]
     Indication: CHEMOTHERAPY
     Route: 058
     Dates: start: 20080220, end: 20080220
  2. RITUXIMAB [Concomitant]
     Dates: start: 20080219
  3. CYCLOPHOSPHAMIDE [Concomitant]
     Dates: start: 20080219
  4. DOXORUBICIN HYDROCHLORIDE [Concomitant]
     Dates: start: 20080219
  5. VINCRISTINE [Concomitant]
     Dates: start: 20080219
  6. PREDNISONE [Concomitant]
     Dates: start: 20080219

REACTIONS (1)
  - FEBRILE NEUTROPENIA [None]
